FAERS Safety Report 5535543-0 (Version None)
Quarter: 2007Q4

REPORT INFORMATION
  Report Type: 
  Country: None (occurrence: None)
  Receive Date: 20071203
  Receipt Date: 20071203
  Transmission Date: 20080405
  Serious: Yes (Hospitalization, Other)
  Sender: FDA-Public Use
  Company Number: None

PATIENT
  Sex: Female

DRUGS (9)
  1. RITUXIMAB [Suspect]
     Indication: URTICARIA CHRONIC
     Dosage: 1000MG IV DAYS 1 + 15
     Route: 042
     Dates: start: 20060504, end: 20060518
  2. PREDNISONE [Concomitant]
  3. LORATADINE [Concomitant]
  4. RAMIPRIL [Concomitant]
  5. LEXAPRO [Concomitant]
  6. HYDROXYZINE [Concomitant]
  7. MULTI-VITAMIN [Concomitant]
  8. CALCIUM + VIT D [Concomitant]
  9. FEOSOL [Concomitant]

REACTIONS (1)
  - FOLLICULAR THYROID CANCER [None]
